FAERS Safety Report 7353357-6 (Version None)
Quarter: 2011Q1

REPORT INFORMATION
  Report Type: 
  Country: None (occurrence: None)
  Receive Date: 20110315
  Receipt Date: 20110308
  Transmission Date: 20110831
  Serious: Yes (Other)
  Sender: FDA-Public Use
  Company Number: GB-PFIZER INC-2011051707

PATIENT
  Age: 39 Year
  Sex: Female

DRUGS (1)
  1. EXEMESTANE [Suspect]
     Dosage: UNK
     Dates: start: 20101201

REACTIONS (5)
  - NAUSEA [None]
  - PARANOIA [None]
  - DEPRESSION [None]
  - PARAESTHESIA [None]
  - INSOMNIA [None]
